FAERS Safety Report 8477251-2 (Version None)
Quarter: 2012Q2

REPORT INFORMATION
  Report Type: 
  Country: None (occurrence: None)
  Receive Date: 20120629
  Receipt Date: 20120620
  Transmission Date: 20120825
  Serious: Yes (Hospitalization, Other)
  Sender: FDA-Public Use
  Company Number: RU-BAYER-2012-048916

PATIENT
  Age: 41 Year
  Sex: Female

DRUGS (2)
  1. MIRENA [Suspect]
     Indication: ENDOMETRIOSIS
  2. MIRENA [Suspect]
     Indication: UTERINE LEIOMYOMA
     Dosage: UNK
     Route: 015
     Dates: start: 20110201, end: 20120618

REACTIONS (2)
  - COLITIS ULCERATIVE [None]
  - METRORRHAGIA [None]
